FAERS Safety Report 9346029 (Version 1)
Quarter: 2013Q2

REPORT INFORMATION
  Report Type: Spontaneous
  Country: NL (occurrence: NL)
  Receive Date: 20130613
  Receipt Date: 20130613
  Transmission Date: 20140414
  Serious: Yes (Death, Other)
  Sender: FDA-Public Use
  Company Number: NL-ELI_LILLY_AND_COMPANY-NL201306001507

PATIENT
  Age: 43 Year
  Sex: Male

DRUGS (3)
  1. RISPERDON [Concomitant]
     Dosage: 3 MG, QD
     Dates: start: 2009, end: 20130319
  2. RISPERDON [Concomitant]
     Dosage: 4 MG, QD
     Dates: start: 20130308, end: 20130320
  3. ZYPREXA [Suspect]
     Dosage: 2.5 MG, QD
     Dates: start: 20130320

REACTIONS (3)
  - Cardiac arrest [Fatal]
  - Pulmonary embolism [Fatal]
  - Liver function test abnormal [Not Recovered/Not Resolved]
